FAERS Safety Report 16634583 (Version 1)
Quarter: 2019Q3

REPORT INFORMATION
  Report Type: Spontaneous
  Country: JP (occurrence: JP)
  Receive Date: 20190726
  Receipt Date: 20190726
  Transmission Date: 20191004
  Serious: Yes (Death, Other)
  Sender: FDA-Public Use
  Company Number: JP-B.I. PHARMACEUTICALS,INC./RIDGEFIELD-2019-NB-003398

PATIENT
  Age: 69 Year
  Sex: Male

DRUGS (1)
  1. PRAZAXA [Suspect]
     Active Substance: DABIGATRAN ETEXILATE MESYLATE
     Indication: TROUSSEAU^S SYNDROME
     Route: 065

REACTIONS (4)
  - Drug ineffective [Unknown]
  - Portal vein embolism [Unknown]
  - Lower gastrointestinal haemorrhage [Unknown]
  - Trousseau^s syndrome [Fatal]
